FAERS Safety Report 14570326 (Version 2)
Quarter: 2018Q2

REPORT INFORMATION
  Report Type: Spontaneous
  Country: US (occurrence: US)
  Receive Date: 20180226
  Receipt Date: 20180421
  Transmission Date: 20180711
  Serious: Yes (Other)
  Sender: FDA-Public Use
  Company Number: US-SUN PHARMACEUTICAL INDUSTRIES LTD-2018US-163856

PATIENT
  Age: 45 Year
  Sex: Female
  Weight: 56.8 kg

DRUGS (8)
  1. METHYLPREDNISOLONE. [Suspect]
     Active Substance: METHYLPREDNISOLONE
     Indication: PRODUCT USED FOR UNKNOWN INDICATION
     Dosage: 1000 MG, UNK
     Route: 065
  2. PREDNISONE. [Suspect]
     Active Substance: PREDNISONE
     Indication: PRODUCT USED FOR UNKNOWN INDICATION
     Dosage: 30 MG, DAILY
     Route: 048
  3. PREDNISONE. [Suspect]
     Active Substance: PREDNISONE
     Dosage: GRADUAL TAPER BY 2.5MG REDUCTION IN DAILY DOSE EVERY WEEK
     Route: 048
  4. TACROLIMUS. [Suspect]
     Active Substance: TACROLIMUS
     Indication: IMMUNOSUPPRESSION
     Dosage: 16 MG, DAILY
     Route: 065
  5. MYCOPHENOLATE MOFETIL. [Suspect]
     Active Substance: MYCOPHENOLATE MOFETIL
     Indication: IMMUNOSUPPRESSION
     Dosage: 1 G, DAILY AT THE LAST FOLLOW-UP
     Route: 065
  6. PREDNISONE. [Suspect]
     Active Substance: PREDNISONE
     Dosage: 5 MG, DAILY AT LAST FOLLOW-UP
     Route: 048
  7. COMJUGATED ESTROGEN-MEDROXY-PROGESTERONE ACETATE [Concomitant]
     Indication: HORMONE REPLACEMENT THERAPY
     Dosage: 0.3 - 1.5 MG/UNIT
     Route: 065
  8. TACROLIMUS. [Suspect]
     Active Substance: TACROLIMUS
     Dosage: STEROIDS (30 MG/D) THAT WERE TAPERED GRADUALLY TO TACROLIMUS
     Route: 065

REACTIONS (6)
  - Bone loss [Unknown]
  - Hypoalbuminaemia [Unknown]
  - Bone metabolism disorder [Unknown]
  - Resorption bone decreased [Unknown]
  - Osteopenia [Unknown]
  - Menopausal symptoms [Unknown]
